FAERS Safety Report 8470229-4 (Version None)
Quarter: 2012Q2

REPORT INFORMATION
  Report Type: 
  Country: None (occurrence: None)
  Receive Date: 20120621
  Receipt Date: 20120621
  Transmission Date: 20120825
  Serious: Yes (Other)
  Sender: FDA-Public Use
  Company Number: None

PATIENT
  Age: 60 Year
  Sex: Female
  Weight: 91.6266 kg

DRUGS (1)
  1. FLOVENT [Suspect]
     Indication: ASTHMA
     Dosage: 1 PUFF TWICE/DAY INHAL
     Route: 055
     Dates: start: 20120415, end: 20120515

REACTIONS (2)
  - HALLUCINATION [None]
  - ANXIETY [None]
